FAERS Safety Report 8409359-1 (Version None)
Quarter: 2012Q2

REPORT INFORMATION
  Report Type: 
  Country: None (occurrence: None)
  Receive Date: 20120605
  Receipt Date: 20120529
  Transmission Date: 20120825
  Serious: No
  Sender: FDA-Public Use
  Company Number: US-BIOGENIDEC-2012BI018767

PATIENT
  Sex: Female

DRUGS (3)
  1. TYSABRI [Suspect]
     Indication: MULTIPLE SCLEROSIS
     Route: 042
     Dates: start: 20090225, end: 20100512
  2. TYSABRI [Suspect]
     Route: 042
     Dates: start: 20111219
  3. AVONEX [Concomitant]
     Indication: MULTIPLE SCLEROSIS
     Route: 030
     Dates: start: 20080827

REACTIONS (4)
  - URINARY TRACT INFECTION [None]
  - GASTROINTESTINAL SOUNDS ABNORMAL [None]
  - CONSTIPATION [None]
  - AMNESIA [None]
